FAERS Safety Report 19177335 (Version 1)
Quarter: 2021Q2

REPORT INFORMATION
  Report Type: Spontaneous
  Country: IT (occurrence: IT)
  Receive Date: 20210425
  Receipt Date: 20210425
  Transmission Date: 20210717
  Serious: Yes (Death, Other)
  Sender: FDA-Public Use
  Company Number: IT-AMGEN-ITASP2021061654

PATIENT
  Age: 27 Year
  Sex: Female

DRUGS (2)
  1. BLINATUMOMAB [Suspect]
     Active Substance: BLINATUMOMAB
     Indication: B PRECURSOR TYPE ACUTE LEUKAEMIA
  2. BLINATUMOMAB [Suspect]
     Active Substance: BLINATUMOMAB
     Indication: TRISOMY 21
     Dosage: UNK
     Route: 065

REACTIONS (4)
  - Drug ineffective [Unknown]
  - Cytokine release syndrome [Unknown]
  - Acute lymphocytic leukaemia recurrent [Unknown]
  - Death [Fatal]
